FAERS Safety Report 5233154-8 (Version None)
Quarter: 2007Q1

REPORT INFORMATION
  Report Type: 
  Country: None (occurrence: None)
  Receive Date: 20070207
  Receipt Date: 20070129
  Transmission Date: 20070707
  Serious: Yes (Other)
  Sender: FDA-Public Use
  Company Number: LB-PFIZER INC-2007007845

PATIENT
  Age: 70 Year
  Sex: Female

DRUGS (1)
  1. AMLOR [Suspect]
     Indication: HYPERTENSION
     Route: 048
     Dates: start: 20070118, end: 20070118

REACTIONS (2)
  - FACE OEDEMA [None]
  - PARAESTHESIA ORAL [None]
